FAERS Safety Report 17677656 (Version 1)
Quarter: 2020Q2

REPORT INFORMATION
  Report Type: Spontaneous
  Country: JP (occurrence: JP)
  Receive Date: 20200416
  Receipt Date: 20200416
  Transmission Date: 20200714
  Serious: Yes (Other)
  Sender: FDA-Public Use
  Company Number: JP-ASTRAZENECA-2019SF77130

PATIENT
  Age: 72 Year
  Sex: Female

DRUGS (19)
  1. LYNPARZA [Suspect]
     Active Substance: OLAPARIB
     Indication: OVARIAN CANCER
     Route: 048
     Dates: start: 20190917, end: 20190923
  2. PREDONINE [Concomitant]
     Active Substance: PREDNISOLONE
     Dosage: DOSE UNKNOWN
     Route: 065
  3. LYNPARZA [Suspect]
     Active Substance: OLAPARIB
     Indication: OVARIAN CANCER
     Route: 048
     Dates: start: 20190924, end: 20191008
  4. ETIZOLAM [Concomitant]
     Active Substance: ETIZOLAM
     Dosage: DOSE UNKNOWN
     Route: 065
  5. LOXONIN [Concomitant]
     Active Substance: LOXOPROFEN SODIUM
     Dosage: DOSE UNKNOWN
     Route: 065
  6. MICAMLO [Concomitant]
     Active Substance: AMLODIPINE BESYLATE\TELMISARTAN
     Indication: HYPERTENSION
     Dosage: DOSE UNKNOWN
     Route: 065
     Dates: start: 20180206
  7. XALACOM [Concomitant]
     Active Substance: LATANOPROST\TIMOLOL MALEATE
     Dosage: DOSE UNKNOWN
     Route: 047
  8. DAIKENCHUTO [Concomitant]
     Active Substance: HERBALS
     Dosage: DOSE UNKNOWN
     Route: 048
  9. ALPHAGAN P [Concomitant]
     Active Substance: BRIMONIDINE TARTRATE
     Dosage: DOSE UNKNOWN
     Route: 047
  10. TAKECAB [Concomitant]
     Active Substance: VONOPRAZAN FUMARATE
     Dosage: DOSE UNKNOWN
     Route: 065
  11. REBAMIPIDE [Concomitant]
     Active Substance: REBAMIPIDE
     Dosage: DOSE UNKNOWN
     Route: 065
  12. LYNPARZA [Suspect]
     Active Substance: OLAPARIB
     Indication: OVARIAN CANCER
     Route: 048
     Dates: start: 20191028, end: 20191126
  13. MAGNESIUM OXIDE. [Concomitant]
     Active Substance: MAGNESIUM OXIDE
     Dosage: DOSE UNKNOWN
     Route: 065
  14. LYRICA [Concomitant]
     Active Substance: PREGABALIN
     Dosage: DOSE UNKNOWN
     Route: 065
  15. LYNPARZA [Suspect]
     Active Substance: OLAPARIB
     Indication: OVARIAN CANCER
     Route: 048
     Dates: start: 20191210, end: 20191215
  16. PROGRAF [Concomitant]
     Active Substance: TACROLIMUS
     Dosage: DOSE UNKNOWN
     Route: 065
  17. ADOFEED [Concomitant]
     Active Substance: FLURBIPROFEN
     Dosage: DOSE UNKNOWN
     Route: 065
  18. DENOTAS [Concomitant]
     Active Substance: CALCIUM CARBONATE\CHOLECALCIFEROL\MAGNESIUM CARBONATE
     Dosage: DOSE UNKNOWN
     Route: 065
  19. FILGRASTIM(GENETICAL RECOMBINATION) [Concomitant]
     Active Substance: FILGRASTIM
     Indication: OVARIAN CANCER
     Dosage: DOSE UNKNOWN
     Route: 065

REACTIONS (8)
  - Ascites [Unknown]
  - Ileus [Unknown]
  - Red blood cell morphology abnormal [Recovering/Resolving]
  - Vein collapse [Unknown]
  - Vomiting [Unknown]
  - Cold sweat [Unknown]
  - Faeces hard [Unknown]
  - Pain [Unknown]

NARRATIVE: CASE EVENT DATE: 20191008
